FAERS Safety Report 16210787 (Version 2)
Quarter: 2019Q2

REPORT INFORMATION
  Report Type: Spontaneous
  Country: KR (occurrence: KR)
  Receive Date: 20190418
  Receipt Date: 20190605
  Transmission Date: 20190711
  Serious: Yes (Hospitalization)
  Sender: FDA-Public Use
  Company Number: KR-009507513-1904KOR007512

PATIENT
  Sex: Male

DRUGS (3)
  1. KEYTRUDA [Suspect]
     Active Substance: PEMBROLIZUMAB
     Dosage: DOSE 1, QUANTITY 1, DAYS 1
     Dates: start: 20190430, end: 20190430
  2. KEYTRUDA [Suspect]
     Active Substance: PEMBROLIZUMAB
     Dosage: DOSE 1, QUANTITY 1, DAYS 1
     Dates: start: 20190527, end: 20190527
  3. KEYTRUDA [Suspect]
     Active Substance: PEMBROLIZUMAB
     Indication: TONSIL CANCER
     Dosage: QUANTITY: 1, DAYS: 1
     Dates: start: 20190409, end: 20190409

REACTIONS (2)
  - Adverse event [Unknown]
  - Product use in unapproved indication [Unknown]

NARRATIVE: CASE EVENT DATE: 201904
